FAERS Safety Report 8307487-2 (Version None)
Quarter: 2012Q2

REPORT INFORMATION
  Report Type: 
  Country: None (occurrence: None)
  Receive Date: 20120424
  Receipt Date: 20120419
  Transmission Date: 20120825
  Serious: No
  Sender: FDA-Public Use
  Company Number: US-PFIZER INC-2012097753

PATIENT
  Sex: Male
  Weight: 126.53 kg

DRUGS (8)
  1. CELEBREX [Suspect]
  2. CELEBREX [Suspect]
  3. CELEBREX [Suspect]
     Indication: SPONDYLITIS
  4. CELEBREX [Suspect]
     Indication: ARTHRITIS
     Dosage: 200 MG, 1X/DAY
     Route: 048
     Dates: start: 20100701, end: 20111001
  5. ACCURETIC [Concomitant]
     Dosage: 20/25 MG, UNK
     Dates: start: 20100101
  6. ASPIRIN [Concomitant]
     Dosage: UNK
     Dates: end: 20110101
  7. TOPROL-XL [Concomitant]
     Dosage: 100 MG, UNK
  8. CELEBREX [Suspect]

REACTIONS (4)
  - RENAL DISORDER [None]
  - BONE DISORDER [None]
  - NERVOUS SYSTEM DISORDER [None]
  - GOUT [None]
